FAERS Safety Report 15709689 (Version 2)
Quarter: 2020Q1

REPORT INFORMATION
  Report Type: Spontaneous
  Country: CH (occurrence: CH)
  Receive Date: 20181211
  Receipt Date: 20200310
  Transmission Date: 20200409
  Serious: Yes (Life-Threatening, Other)
  Sender: FDA-Public Use
  Company Number: CH-ELI_LILLY_AND_COMPANY-CH201812003409

PATIENT
  Sex: Female

DRUGS (18)
  1. SANALEPSI N [Suspect]
     Active Substance: DOXYLAMINE SUCCINATE
     Indication: PRODUCT USED FOR UNKNOWN INDICATION
     Dosage: 10 DF, DAILY
     Route: 064
  2. BUPIVACAINE. [Suspect]
     Active Substance: BUPIVACAINE
     Indication: PRODUCT USED FOR UNKNOWN INDICATION
     Dosage: UNK UNK, UNKNOWN
     Route: 064
     Dates: start: 20181126
  3. SANALEPSI N [Suspect]
     Active Substance: DOXYLAMINE SUCCINATE
     Dosage: 15 DF, DAILY
     Route: 064
  4. RANITIDINE. [Concomitant]
     Active Substance: RANITIDINE
     Indication: PRODUCT USED FOR UNKNOWN INDICATION
     Dosage: UNK
     Route: 064
     Dates: start: 20181126
  5. LIORESAL [Concomitant]
     Active Substance: BACLOFEN
     Dosage: 100 MG, DAILY
     Route: 064
  6. CYMBALTA [Suspect]
     Active Substance: DULOXETINE HYDROCHLORIDE
     Indication: BORDERLINE PERSONALITY DISORDER
     Dosage: 120 MG, DAILY
     Route: 064
  7. CYMBALTA [Suspect]
     Active Substance: DULOXETINE HYDROCHLORIDE
     Indication: BORDERLINE PERSONALITY DISORDER
     Dosage: 120 MG, DAILY
     Route: 064
  8. RANITIDINE. [Concomitant]
     Active Substance: RANITIDINE
     Indication: PRODUCT USED FOR UNKNOWN INDICATION
     Dosage: UNK
     Route: 064
     Dates: start: 20181126
  9. LIDOCAINE. [Suspect]
     Active Substance: LIDOCAINE
     Indication: PRODUCT USED FOR UNKNOWN INDICATION
     Dosage: UNK UNK, UNKNOWN
     Route: 064
     Dates: start: 20181126
  10. TEMESTA [LORAZEPAM] [Suspect]
     Active Substance: LORAZEPAM
     Indication: PRODUCT USED FOR UNKNOWN INDICATION
     Dosage: 1 MG, SINGLE
     Route: 064
     Dates: start: 20181126
  11. LIORESAL [Concomitant]
     Active Substance: BACLOFEN
     Indication: ALCOHOL USE
     Dosage: 60 MG, DAILY
     Route: 064
  12. LIDOCAINE. [Suspect]
     Active Substance: LIDOCAINE
     Indication: PRODUCT USED FOR UNKNOWN INDICATION
     Dosage: UNK UNK, UNKNOWN
     Route: 064
     Dates: start: 20181126
  13. BUPIVACAINE. [Suspect]
     Active Substance: BUPIVACAINE
     Indication: PRODUCT USED FOR UNKNOWN INDICATION
     Dosage: UNK UNK, UNKNOWN
     Route: 064
     Dates: start: 20181126
  14. TEMESTA [LORAZEPAM] [Suspect]
     Active Substance: LORAZEPAM
     Indication: PRODUCT USED FOR UNKNOWN INDICATION
     Dosage: 1 MG, SINGLE
     Route: 064
     Dates: start: 20181126
  15. SANALEPSI N [Suspect]
     Active Substance: DOXYLAMINE SUCCINATE
     Indication: PRODUCT USED FOR UNKNOWN INDICATION
     Dosage: 10 DF, DAILY
     Route: 064
  16. LIORESAL [Concomitant]
     Active Substance: BACLOFEN
     Indication: ALCOHOL USE
     Dosage: 60 MG, DAILY
     Route: 064
  17. SANALEPSI N [Suspect]
     Active Substance: DOXYLAMINE SUCCINATE
     Dosage: 15 DF, DAILY
     Route: 064
  18. LIORESAL [Concomitant]
     Active Substance: BACLOFEN
     Dosage: 100 MG, DAILY
     Route: 064

REACTIONS (7)
  - Foetal exposure during pregnancy [Recovered/Resolved]
  - Hyperlactacidaemia [Recovered/Resolved]
  - Foetal exposure during pregnancy [Recovered/Resolved]
  - Hypotonia [Recovered/Resolved]
  - Neonatal disorder [Recovered/Resolved]
  - Neonatal respiratory acidosis [Recovered/Resolved]
  - Bradypnoea [Recovered/Resolved]

NARRATIVE: CASE EVENT DATE: 20181126
